FAERS Safety Report 24208806 (Version 2)
Quarter: 2024Q3

REPORT INFORMATION
  Report Type: Spontaneous
  Country: PL (occurrence: PL)
  Receive Date: 20240814
  Receipt Date: 20240826
  Transmission Date: 20241016
  Serious: Yes (Other)
  Sender: AMGEN
  Company Number: PL-AMGEN-POLSP2024158220

PATIENT
  Age: 63 Year
  Sex: Female

DRUGS (8)
  1. VECTIBIX [Suspect]
     Active Substance: PANITUMUMAB
     Indication: Colon cancer
     Dosage: UNK 18 CYCLES
     Route: 065
     Dates: start: 20211213, end: 20220818
  2. VECTIBIX [Suspect]
     Active Substance: PANITUMUMAB
     Dosage: UNK 30 CYCLES
     Route: 065
     Dates: start: 20220830, end: 20221021
  3. VECTIBIX [Suspect]
     Active Substance: PANITUMUMAB
     Dosage: UNK
     Route: 065
     Dates: start: 20231102
  4. LEUCOVORIN [Suspect]
     Active Substance: LEUCOVORIN\LEUCOVORIN CALCIUM
     Indication: Colon cancer
     Dosage: UNK 18 CYCLES
     Route: 065
     Dates: start: 20211213, end: 20220818
  5. LEUCOVORIN [Suspect]
     Active Substance: LEUCOVORIN\LEUCOVORIN CALCIUM
     Dosage: UNK 30 CYCLES
     Route: 065
     Dates: start: 20220830, end: 20221021
  6. FLUOROURACIL [Suspect]
     Active Substance: FLUOROURACIL
     Indication: Colon cancer
     Dosage: UNK 18 CYCLES
     Route: 065
     Dates: start: 20211213, end: 20220818
  7. FLUOROURACIL [Suspect]
     Active Substance: FLUOROURACIL
     Dosage: UNK 30 CYCLES
     Route: 065
     Dates: start: 20220830, end: 20221021
  8. IRINOTECAN [Suspect]
     Active Substance: IRINOTECAN
     Indication: Colon cancer
     Dosage: UNK 18 CYCLES
     Route: 065
     Dates: start: 20211213, end: 20220818

REACTIONS (15)
  - Neutropenia [Unknown]
  - Leukopenia [Unknown]
  - Hypomagnesaemia [Unknown]
  - Conjunctivitis [Unknown]
  - Dysplasia [Unknown]
  - Diverticulum intestinal [Unknown]
  - Fibrosis [Unknown]
  - Fatigue [Unknown]
  - Dermatitis acneiform [Unknown]
  - Growth of eyelashes [Unknown]
  - Erythema [Unknown]
  - Dry skin [Unknown]
  - Skin exfoliation [Unknown]
  - Pruritus [Unknown]
  - Therapy partial responder [Unknown]

NARRATIVE: CASE EVENT DATE: 20220307
